FAERS Safety Report 5093223-2 (Version None)
Quarter: 2006Q3

REPORT INFORMATION
  Report Type: 
  Country: None (occurrence: None)
  Receive Date: 20060828
  Receipt Date: 20060811
  Transmission Date: 20061208
  Serious: Yes (Other)
  Sender: FDA-Public Use
  Company Number: 228707

PATIENT
  Sex: Male

DRUGS (2)
  1. AVASTIN [Suspect]
     Indication: COLORECTAL CANCER METASTATIC
  2. COUMADIN [Concomitant]

REACTIONS (3)
  - BLEEDING TIME PROLONGED [None]
  - HAEMATOCHEZIA [None]
  - SKIN ULCER [None]
